FAERS Safety Report 24685458 (Version 1)
Quarter: 2024Q4

REPORT INFORMATION
  Report Type: Spontaneous
  Country: FR (occurrence: FR)
  Receive Date: 20241202
  Receipt Date: 20241202
  Transmission Date: 20250115
  Serious: Yes (Hospitalization)
  Sender: MYLAN
  Company Number: None

PATIENT
  Age: 61 Year
  Sex: Female
  Weight: 55 kg

DRUGS (10)
  1. ACETAMINOPHEN [Suspect]
     Active Substance: ACETAMINOPHEN
     Indication: Procedural pain
     Dosage: 1000 MILLIGRAM, Q6H
     Route: 048
     Dates: start: 20241015, end: 20241025
  2. ESOMEPRAZOLE [Suspect]
     Active Substance: ESOMEPRAZOLE
     Indication: Prophylaxis against gastrointestinal ulcer
     Dosage: 40 MILLIGRAM, QD
     Route: 048
     Dates: start: 20241015, end: 20241025
  3. PREGABALIN [Suspect]
     Active Substance: PREGABALIN
     Indication: Pain
     Dosage: 1 DOSAGE FORM
     Route: 048
     Dates: start: 20241015, end: 20241025
  4. NAPROXEN [Suspect]
     Active Substance: NAPROXEN
     Indication: Postoperative analgesia
     Dosage: 500 MILLIGRAM, BID (500 MGX2 PER DAY)
     Route: 048
     Dates: start: 20241015, end: 20241025
  5. TRAMADOL HYDROCHLORIDE [Concomitant]
     Active Substance: TRAMADOL HYDROCHLORIDE
     Indication: Procedural pain
     Dosage: 50 MILLIGRAM (1 TABLET EVERY 6 HOURS IF PAIN IS NOT RELIEVED, FOR 2 WEEKS)
     Route: 048
     Dates: start: 20241015, end: 20241025
  6. ACUPAN [Concomitant]
     Active Substance: NEFOPAM HYDROCHLORIDE
     Indication: Procedural pain
     Dosage: 20 MILLIGRAM (1 AMPOULE 3 TIMES A DAY IF NECESSARY FOR A WEEK)
     Route: 048
     Dates: start: 20241015, end: 20241025
  7. ONDANSETRON [Concomitant]
     Active Substance: ONDANSETRON
     Indication: Nausea
     Dosage: 10 MILLIGRAM
     Route: 048
     Dates: start: 20241015, end: 20241025
  8. FERROUS FUMARATE [Concomitant]
     Active Substance: FERROUS FUMARATE
     Indication: Iron deficiency anaemia
     Dosage: 132 MILLIGRAM, QD
     Route: 048
     Dates: start: 20241015, end: 20241025
  9. FOLIC ACID [Concomitant]
     Active Substance: FOLIC ACID
     Indication: Vitamin supplementation
     Dosage: 132 MILLIGRAM, QD
     Route: 048
     Dates: start: 20241015
  10. LOVENOX [Concomitant]
     Active Substance: ENOXAPARIN SODIUM
     Indication: Thrombosis prophylaxis
     Dosage: 4000 INTERNATIONAL UNIT, QD (4 000 UI ANTI-XA/0.4 ML, SOLUTION FOR INJECTION IN CARTRIDGE)
     Route: 058
     Dates: start: 20241015

REACTIONS (1)
  - Hepatitis acute [Recovering/Resolving]

NARRATIVE: CASE EVENT DATE: 20241025
